FAERS Safety Report 25152824 (Version 1)
Quarter: 2025Q2

REPORT INFORMATION
  Report Type: Spontaneous
  Country: US (occurrence: US)
  Receive Date: 20250403
  Receipt Date: 20250403
  Transmission Date: 20250717
  Serious: Yes (Life-Threatening, Hospitalization)
  Sender: NOVO NORDISK
  Company Number: US-NOVOPROD-1397896

PATIENT
  Age: 78 Year
  Sex: Female

DRUGS (12)
  1. OZEMPIC [Suspect]
     Active Substance: SEMAGLUTIDE
     Route: 058
     Dates: start: 20250302
  2. OZEMPIC [Suspect]
     Active Substance: SEMAGLUTIDE
     Indication: Type 2 diabetes mellitus
     Route: 058
     Dates: start: 202412, end: 20250104
  3. METFORMIN [Suspect]
     Active Substance: METFORMIN HYDROCHLORIDE
     Indication: Type 2 diabetes mellitus
  4. SPIRONOLACTONE [Suspect]
     Active Substance: SPIRONOLACTONE
     Indication: Hypertension
  5. SPIRONOLACTONE [Suspect]
     Active Substance: SPIRONOLACTONE
     Indication: Peripheral swelling
  6. LASIX [Suspect]
     Active Substance: FUROSEMIDE
     Indication: Hypertension
  7. LASIX [Suspect]
     Active Substance: FUROSEMIDE
     Indication: Peripheral swelling
  8. MELOXICAM [Suspect]
     Active Substance: MELOXICAM
     Indication: Arthritis
  9. CELEBREX [Concomitant]
     Active Substance: CELECOXIB
     Indication: Arthritis
  10. TRAMADOL [Concomitant]
     Active Substance: TRAMADOL
     Indication: Arthralgia
  11. LANTUS SOLOSTAR [Concomitant]
     Active Substance: INSULIN GLARGINE
     Indication: Product used for unknown indication
     Dosage: 25 IU, QD
  12. HUMALOG [Concomitant]
     Active Substance: INSULIN LISPRO
     Indication: Product used for unknown indication

REACTIONS (10)
  - Renal impairment [Not Recovered/Not Resolved]
  - Hyponatraemia [Recovered/Resolved]
  - Hunger [Not Recovered/Not Resolved]
  - Weight abnormal [Unknown]
  - Dehydration [Unknown]
  - Asthenia [Recovered/Resolved]
  - Decreased appetite [Unknown]
  - Nausea [Recovered/Resolved]
  - Blood glucose fluctuation [Not Recovered/Not Resolved]
  - Blood glucose decreased [Unknown]

NARRATIVE: CASE EVENT DATE: 20241201
